FAERS Safety Report 20888529 (Version 1)
Quarter: 2022Q2

REPORT INFORMATION
  Report Type: Spontaneous
  Country: US (occurrence: US)
  Receive Date: 20220529
  Receipt Date: 20220529
  Transmission Date: 20220720
  Serious: No
  Sender: FDA-Public Use
  Company Number: US-BRISTOL-MYERS SQUIBB COMPANY-2022-042432

PATIENT
  Age: 66 Year

DRUGS (3)
  1. OPDIVO [Suspect]
     Active Substance: NIVOLUMAB
     Indication: Renal cell carcinoma
  2. OPDIVO [Suspect]
     Active Substance: NIVOLUMAB
  3. YERVOY [Suspect]
     Active Substance: IPILIMUMAB
     Indication: Renal cell carcinoma

REACTIONS (8)
  - Hypersensitivity [Unknown]
  - Photophobia [Unknown]
  - Rash macular [Unknown]
  - Drug eruption [Unknown]
  - Psoriasis [Unknown]
  - Oral mucosal blistering [Unknown]
  - Rash vesicular [Unknown]
  - Lichen planus [Unknown]
